FAERS Safety Report 6000181-2 (Version None)
Quarter: 2008Q4

REPORT INFORMATION
  Report Type: 
  Country: None (occurrence: None)
  Receive Date: 20081215
  Receipt Date: 20081203
  Transmission Date: 20090506
  Serious: Yes (Hospitalization)
  Sender: FDA-Public Use
  Company Number: SI-WYE-H07072808

PATIENT

DRUGS (1)
  1. CONTROLOC [Suspect]
     Indication: OESOPHAGITIS
     Route: 048
     Dates: start: 20080429, end: 20080610

REACTIONS (1)
  - DIARRHOEA [None]
